FAERS Safety Report 24094703 (Version 2)
Quarter: 2024Q3

REPORT INFORMATION
  Report Type: Spontaneous
  Country: US (occurrence: US)
  Receive Date: 20240716
  Receipt Date: 20240903
  Transmission Date: 20241016
  Serious: No
  Sender: BLUEPRINT MEDICINES
  Company Number: US-Blueprint Medicines Corporation-4145

PATIENT
  Sex: Female

DRUGS (3)
  1. AYVAKIT [Suspect]
     Active Substance: AVAPRITINIB
     Indication: Gastrointestinal stromal tumour
     Route: 065
     Dates: start: 20240229
  2. AYVAKIT [Suspect]
     Active Substance: AVAPRITINIB
     Route: 065
     Dates: start: 20240229
  3. CARBOXYMETHYLCELLULOSE SODIUM\GLYCERIN [Suspect]
     Active Substance: CARBOXYMETHYLCELLULOSE SODIUM\GLYCERIN
     Indication: Eye swelling
     Route: 047

REACTIONS (11)
  - Breast pain [Recovering/Resolving]
  - Unevaluable event [Unknown]
  - Eye pain [Unknown]
  - Eye swelling [Unknown]
  - Urinary tract infection [Not Recovered/Not Resolved]
  - Brain fog [Recovering/Resolving]
  - Hyperhidrosis [Unknown]
  - Fatigue [Unknown]
  - Asthenia [Unknown]
  - Loss of personal independence in daily activities [Unknown]
  - Photophobia [Unknown]
